FAERS Safety Report 4502044-8 (Version None)
Quarter: 2004Q4

REPORT INFORMATION
  Report Type: 
  Country: None (occurrence: None)
  Receive Date: 20041115
  Receipt Date: 20041115
  Transmission Date: 20050328
  Serious: Yes (Life-Threatening, Hospitalization)
  Sender: FDA-Public Use
  Company Number: None

PATIENT
  Age: 41 Year
  Sex: Male
  Weight: 128.8216 kg

DRUGS (1)
  1. CYMBALTA [Suspect]
     Indication: MAJOR DEPRESSION
     Dosage: 1 CAPSULE EVERY MORNING ORAL
     Route: 048
     Dates: start: 20040920, end: 20041023

REACTIONS (2)
  - HYPERTENSION [None]
  - SUICIDAL IDEATION [None]
